FAERS Safety Report 8955946 (Version 1)
Quarter: 2012Q4

REPORT INFORMATION
  Report Type: Report from Study
  Country: CA (occurrence: CA)
  Receive Date: 20121210
  Receipt Date: 20121210
  Transmission Date: 20130627
  Serious: Yes (Other)
  Sender: FDA-Public Use
  Company Number: CA-JNJFOC-20121201281

PATIENT
  Sex: Female
  Weight: 89 kg

DRUGS (13)
  1. REMICADE [Suspect]
     Indication: CROHN^S DISEASE
     Route: 042
     Dates: start: 20120119
  2. B 12 [Concomitant]
     Route: 065
  3. AZATHIOPRINE [Concomitant]
     Route: 065
  4. LEVOTHYROXINE [Concomitant]
     Dosage: 0.175 (units unspecified)
     Route: 065
  5. ZOPICLONE [Concomitant]
     Dosage: when required
     Route: 065
  6. FERROUS GLUCONATE [Concomitant]
     Route: 065
  7. AVAMYS [Concomitant]
     Route: 065
  8. CALCIUM [Concomitant]
     Route: 065
  9. RALIVIA [Concomitant]
     Route: 065
  10. RESTORALAX [Concomitant]
     Route: 065
  11. VITAMIN D [Concomitant]
     Route: 065
  12. HYDROMORPH CONTIN [Concomitant]
     Route: 065
  13. TRAMADOL [Concomitant]
     Route: 065

REACTIONS (1)
  - Rheumatoid arthritis [Not Recovered/Not Resolved]
